FAERS Safety Report 12678467 (Version 1)
Quarter: 2016Q3

REPORT INFORMATION
  Report Type: Report from Study
  Country: CN (occurrence: CN)
  Receive Date: 20160823
  Receipt Date: 20160823
  Transmission Date: 20161109
  Serious: Yes (Other)
  Sender: FDA-Public Use
  Company Number: CN-B.I. PHARMACEUTICALS,INC./RIDGEFIELD-2016-BI-54742BI

PATIENT

DRUGS (3)
  1. SIFROL [Suspect]
     Active Substance: PRAMIPEXOLE
     Indication: PARKINSON^S DISEASE
     Dosage: 0.5 MG
     Route: 048
  2. SIFROL [Suspect]
     Active Substance: PRAMIPEXOLE
     Dosage: FROM 3RD WEEK TO 8TH WEEK, DOSES WERE INCREASED GRADUALLY STARTING AT 0.25 MG, 3 TIMES DAILY AND ADD
     Route: 048
  3. SIFROL [Suspect]
     Active Substance: PRAMIPEXOLE
     Dosage: 0.75 MG
     Route: 048

REACTIONS (2)
  - Renal disorder [Unknown]
  - Liver injury [Unknown]
